FAERS Safety Report 20354484 (Version 5)
Quarter: 2022Q2

REPORT INFORMATION
  Report Type: Report from Study
  Country: US (occurrence: US)
  Receive Date: 20220120
  Receipt Date: 20220422
  Transmission Date: 20220721
  Serious: No
  Sender: FDA-Public Use
  Company Number: US-NOVARTISTESTPH-NVSC2022US009213

PATIENT
  Sex: Male

DRUGS (1)
  1. ENTRESTO [Suspect]
     Active Substance: SACUBITRIL\VALSARTAN
     Indication: Cardiac failure
     Dosage: UNK UNK, BID (HAD BEEN ON ENTRESTO FOR 3 WEEKS)
     Route: 048

REACTIONS (3)
  - Weight decreased [Unknown]
  - Heart rate irregular [Unknown]
  - Drug ineffective [Unknown]
